FAERS Safety Report 21470035 (Version 1)
Quarter: 2022Q4

REPORT INFORMATION
  Report Type: Spontaneous
  Country: BE (occurrence: BE)
  Receive Date: 20221018
  Receipt Date: 20221018
  Transmission Date: 20230112
  Serious: Yes (Death, Other)
  Sender: FDA-Public Use
  Company Number: BE-ALKEM LABORATORIES LIMITED-BE-ALKEM-2022-08272

PATIENT

DRUGS (1)
  1. AZATHIOPRINE [Suspect]
     Active Substance: AZATHIOPRINE
     Indication: Lupus nephritis
     Dosage: 2 MILLIGRAM/KILOGRAM/DAY
     Route: 065

REACTIONS (1)
  - Sepsis [Fatal]
